FAERS Safety Report 6517917-4 (Version None)
Quarter: 2009Q4

REPORT INFORMATION
  Report Type: 
  Country: None (occurrence: None)
  Receive Date: 20091224
  Receipt Date: 20091215
  Transmission Date: 20100525
  Serious: Yes (Hospitalization, Other)
  Sender: FDA-Public Use
  Company Number: CA-ROCHE-650586

PATIENT
  Sex: Female

DRUGS (1)
  1. BEVACIZUMAB [Suspect]
     Dosage: FORM: INFUSION, THERAPY WITHHELD IN 2009
     Route: 042
     Dates: start: 20090702

REACTIONS (5)
  - DEHYDRATION [None]
  - NAUSEA [None]
  - NEOPLASM PROGRESSION [None]
  - THROMBOSIS [None]
  - VOMITING [None]
